FAERS Safety Report 9930928 (Version 2)
Quarter: 2014Q1

REPORT INFORMATION
  Report Type: Spontaneous
  Country: US (occurrence: US)
  Receive Date: 20140227
  Receipt Date: 20140227
  Transmission Date: 20141002
  Serious: No
  Sender: FDA-Public Use
  Company Number: US-AMGEN-USASP2013091323

PATIENT
  Age: 42 Year
  Sex: Male
  Weight: 102.4 kg

DRUGS (1)
  1. ENBREL [Suspect]
     Indication: PSORIASIS
     Dosage: 50 MG, UNK
     Route: 058
     Dates: start: 20131220, end: 20131227

REACTIONS (4)
  - Drug hypersensitivity [Unknown]
  - Injection site pain [Recovered/Resolved]
  - Injection site vesicles [Recovered/Resolved]
  - Injection site rash [Recovered/Resolved]
